FAERS Safety Report 6710988-1 (Version None)
Quarter: 2010Q2

REPORT INFORMATION
  Report Type: 
  Country: None (occurrence: None)
  Receive Date: 20100505
  Receipt Date: 20100421
  Transmission Date: 20101027
  Serious: Yes (Hospitalization, Other)
  Sender: FDA-Public Use
  Company Number: DE-WYE-G05148809

PATIENT
  Sex: Female

DRUGS (2)
  1. VENLAFAXINE HCL [Suspect]
     Indication: DEPRESSION
     Dosage: 150 MG PER DAY FROM AN UNKNOWN DATE UNTIL DEC-2009
     Route: 048
  2. LYRICA [Interacting]
     Indication: DEPRESSION
     Dosage: 100 MG 4 TIMES PER DAY FROM AN UNKNOWN DATE, REDUCED TO 50 MG 4 TIMES PER DAY FROM DEC-2009
     Route: 048

REACTIONS (7)
  - DRUG INTERACTION [None]
  - FALL [None]
  - FATIGUE [None]
  - HAEMATOMA [None]
  - INTENTIONAL DRUG MISUSE [None]
  - PULMONARY EMBOLISM [None]
  - THROMBOSIS [None]
